FAERS Safety Report 17224593 (Version 2)
Quarter: 2020Q1

REPORT INFORMATION
  Report Type: Report from Study
  Country: DE (occurrence: DE)
  Receive Date: 20200102
  Receipt Date: 20200121
  Transmission Date: 20200409
  Serious: Yes (Death, Hospitalization, Other)
  Sender: FDA-Public Use
  Company Number: DE-INCYTE CORPORATION-2018IN004783

PATIENT

DRUGS (20)
  1. INCB018424 [Suspect]
     Active Substance: RUXOLITINIB
     Dosage: 40 MG, QD
     Route: 048
     Dates: start: 20180508
  2. INCB018424 [Suspect]
     Active Substance: RUXOLITINIB
     Dosage: 20 MG (ONE IN THE MORNING)
     Route: 048
  3. NOVALGIN (METAMIZOLE SODIUM) [Suspect]
     Active Substance: METAMIZOLE SODIUM
     Indication: PAIN IN EXTREMITY
     Dosage: UNK
     Route: 065
  4. ALDARA [Concomitant]
     Active Substance: IMIQUIMOD
     Indication: PRODUCT USED FOR UNKNOWN INDICATION
     Route: 065
  5. VITAMIN B DUO [Concomitant]
     Indication: PRODUCT USED FOR UNKNOWN INDICATION
     Dosage: UNK, QD (IN THE MORNING)
     Route: 065
  6. INCB018424 [Suspect]
     Active Substance: RUXOLITINIB
     Dosage: 5 MG, BID (ONE IN THE MORINING, ONE IN THE EVENING)
     Route: 048
     Dates: start: 20180812
  7. TRAMAL [Suspect]
     Active Substance: TRAMADOL
     Indication: PAIN IN EXTREMITY
     Dosage: UNK
     Route: 065
  8. DIPIDOLOR [Suspect]
     Active Substance: PIRITRAMIDE
     Indication: PAIN IN EXTREMITY
     Dosage: UNK
     Route: 058
  9. INCB018424 [Suspect]
     Active Substance: RUXOLITINIB
     Dosage: 30 MG, QD
     Route: 048
     Dates: start: 20171107
  10. ALPHA-VIBOLEX [Concomitant]
     Indication: PRODUCT USED FOR UNKNOWN INDICATION
     Dosage: 300 OT, QD (IN THE MORNING)
     Route: 065
  11. MORPHINE [Concomitant]
     Active Substance: MORPHINE
     Indication: PROPHYLAXIS
     Dosage: 5 MG (THRICE DAILY, IN THE MORNING, AT NOON, IN THE EVENING)
     Route: 058
  12. INCB018424 [Suspect]
     Active Substance: RUXOLITINIB
     Indication: MYELOFIBROSIS
     Dosage: UNK
     Route: 065
     Dates: start: 2013
  13. SANCUSO [Concomitant]
     Active Substance: GRANISETRON
     Indication: PRODUCT USED FOR UNKNOWN INDICATION
     Dosage: 1 DF (TO BE CHANGED EVERY 7 DAYS)
     Route: 065
  14. INCB018424 [Suspect]
     Active Substance: RUXOLITINIB
     Dosage: 5 OT (ONE IN THE EVENING)
     Route: 065
  15. INCB018424 [Suspect]
     Active Substance: RUXOLITINIB
     Dosage: HALF DOSE OF 20 MG (ONE IN THE MORNING)
     Route: 048
  16. VITAMIN B COMPLEX [Concomitant]
     Active Substance: CYANOCOBALAMIN\DEXPANTHENOL\NIACINAMIDE\PYRIDOXINE HYDROCHLORIDE\RIBOFLAVIN 5^-PHOSPHATE SODIUM\THIAMINE HYDROCHLORIDE\VITAMIN B COMPLEX
     Indication: PRODUCT USED FOR UNKNOWN INDICATION
     Dosage: UNK, QD (IN THE MORNING)
     Route: 065
  17. MAGNESIUM [Concomitant]
     Active Substance: MAGNESIUM
     Indication: PRODUCT USED FOR UNKNOWN INDICATION
     Dosage: 150 OT, BID (IN THE MORNING AND IN THE EVENING)
     Route: 065
  18. TARGIN [Concomitant]
     Active Substance: NALOXONE HYDROCHLORIDE\OXYCODONE HYDROCHLORIDE
     Indication: PRODUCT USED FOR UNKNOWN INDICATION
     Dosage: 5/2.5 , BID (IN THE MORNING AND IN THE EVENING)
     Route: 065
  19. MORPHINE [Concomitant]
     Active Substance: MORPHINE
     Indication: PAIN
     Dosage: 5 MG (UP TO 6 TIMES DAILY,  EVERY 4 HOURS)
     Route: 058
  20. MORPHINE [Concomitant]
     Active Substance: MORPHINE
     Indication: DYSPNOEA

REACTIONS (40)
  - Inappropriate schedule of product administration [Unknown]
  - Oedema peripheral [Fatal]
  - Anaemia [Unknown]
  - Supraventricular extrasystoles [Unknown]
  - White blood cell count increased [Unknown]
  - Muscle haemorrhage [Fatal]
  - PCO2 increased [Unknown]
  - Pleural effusion [Unknown]
  - Restlessness [Unknown]
  - Serum ferritin increased [Unknown]
  - Glomerular filtration rate decreased [Unknown]
  - Thrombocytopenia [Unknown]
  - Lymphocyte count decreased [Unknown]
  - Blood potassium decreased [Unknown]
  - Haematoma [Fatal]
  - Pain in extremity [Fatal]
  - Sleep disorder [Unknown]
  - Oesophageal haemorrhage [Unknown]
  - Femur fracture [Unknown]
  - Basal cell carcinoma [Unknown]
  - Dermatitis exfoliative generalised [Not Recovered/Not Resolved]
  - Promyelocyte count increased [Unknown]
  - General physical health deterioration [Unknown]
  - Basophil count increased [Unknown]
  - Haemoglobin decreased [Unknown]
  - International normalised ratio increased [Unknown]
  - Metamyelocyte count increased [Unknown]
  - Myelocyte count increased [Unknown]
  - PO2 decreased [Unknown]
  - Nausea [Recovering/Resolving]
  - Blood creatinine decreased [Unknown]
  - Dyspnoea at rest [Unknown]
  - Von Willebrand^s disease [Unknown]
  - Vomiting [Unknown]
  - Paraesthesia [Fatal]
  - Cholelithiasis [Unknown]
  - Heart rate increased [Unknown]
  - Blood lactate dehydrogenase increased [Unknown]
  - Blood bicarbonate increased [Unknown]
  - Discomfort [Recovering/Resolving]

NARRATIVE: CASE EVENT DATE: 2013
